FAERS Safety Report 5276588-8 (Version None)
Quarter: 2007Q1

REPORT INFORMATION
  Report Type: 
  Country: None (occurrence: None)
  Receive Date: 20070327
  Receipt Date: 20070321
  Transmission Date: 20070707
  Serious: Yes (Life-Threatening, Hospitalization)
  Sender: FDA-Public Use
  Company Number: GB-ELI_LILLY_AND_COMPANY-GB200703004235

PATIENT
  Age: 62 Year
  Sex: Male

DRUGS (1)
  1. ZYPREXA [Suspect]
     Indication: MANIA
     Dosage: 7.5 MG, DAILY (1/D)
     Route: 048
     Dates: start: 20070201

REACTIONS (4)
  - COMA [None]
  - PCO2 INCREASED [None]
  - RESPIRATORY ARREST [None]
  - SYNCOPE [None]
